FAERS Safety Report 5290200-3 (Version None)
Quarter: 2007Q2

REPORT INFORMATION
  Report Type: 
  Country: None (occurrence: None)
  Receive Date: 20070402
  Receipt Date: 20070320
  Transmission Date: 20071010
  Serious: Yes (Hospitalization)
  Sender: FDA-Public Use
  Company Number: SU-2007-006038

PATIENT
  Age: 72 Year
  Sex: Male
  Weight: 117.9352 kg

DRUGS (3)
  1. BENICAR [Suspect]
     Indication: HYPERTENSION
     Dosage: 40 MG QD PO
     Route: 048
     Dates: start: 20050101
  2. FLOMAX [Concomitant]
  3. TOPROL-XL [Concomitant]

REACTIONS (1)
  - GASTROINTESTINAL OBSTRUCTION [None]
